FAERS Safety Report 12824516 (Version 5)
Quarter: 2018Q2

REPORT INFORMATION
  Report Type: Spontaneous
  Country: US (occurrence: US)
  Receive Date: 20161007
  Receipt Date: 20180606
  Transmission Date: 20180711
  Serious: Yes (Other)
  Sender: FDA-Public Use
  Company Number: US-PFIZER INC-2016438175

PATIENT
  Age: 67 Year
  Sex: Female

DRUGS (3)
  1. LYRICA [Suspect]
     Active Substance: PREGABALIN
     Indication: CONGENITAL NEUROPATHY
     Dosage: 300 MG, 3X/DAY PRN
     Route: 048
  2. LYRICA [Suspect]
     Active Substance: PREGABALIN
     Dosage: 300 MG, 2X/DAY
     Route: 048
  3. LYRICA [Suspect]
     Active Substance: PREGABALIN
     Indication: UPPER LIMB FRACTURE
     Dosage: 300 MG, 3X/DAY
     Route: 048

REACTIONS (7)
  - Prescribed overdose [Unknown]
  - Lyme disease [Recovered/Resolved]
  - Drug ineffective for unapproved indication [Unknown]
  - Product use issue [Unknown]
  - Nerve injury [Unknown]
  - Pain [Unknown]
  - Dental caries [Unknown]
